FAERS Safety Report 7456187-X (Version None)
Quarter: 2011Q2

REPORT INFORMATION
  Report Type: 
  Country: None (occurrence: None)
  Receive Date: 20110503
  Receipt Date: 20110419
  Transmission Date: 20111010
  Serious: Yes (Other)
  Sender: FDA-Public Use
  Company Number: US-WATSON-2011-05433

PATIENT
  Sex: Male

DRUGS (6)
  1. LORAZEPAM [Suspect]
     Indication: SLEEP DISORDER
  2. METHADONE [Suspect]
     Indication: PAIN
     Dosage: 80 MG, DAILY (8 TABLETS PER DAY)
     Route: 048
     Dates: start: 19960101
  3. LORAZEPAM [Suspect]
     Indication: ANXIETY
     Dosage: 0.5 MG, BID
     Route: 048
     Dates: start: 20101015, end: 20101103
  4. OXYMORPHONE [Concomitant]
     Indication: PAIN
     Dosage: TAKEN FOR YEARS; NO CHANGE TO REGIMEN
     Route: 048
  5. LORAZEPAM [Suspect]
     Dosage: 1 TAB IN AFTERNOON, 3 TABS AT BEDTIME
     Route: 048
     Dates: start: 20101104, end: 20101101
  6. NEURONTIN [Concomitant]
     Indication: PAIN
     Dosage: TAKEN FOR YEARS; NO CHANGE TO REGIMEN
     Route: 048

REACTIONS (10)
  - ABNORMAL BEHAVIOUR [None]
  - SOMNOLENCE [None]
  - DIZZINESS [None]
  - JUDGEMENT IMPAIRED [None]
  - MENTAL IMPAIRMENT [None]
  - HOSTILITY [None]
  - FOOT FRACTURE [None]
  - FALL [None]
  - DRUG INTERACTION [None]
  - MEMORY IMPAIRMENT [None]
